FAERS Safety Report 5265142-X (Version None)
Quarter: 2007Q1

REPORT INFORMATION
  Report Type: 
  Country: None (occurrence: None)
  Receive Date: 20061121
  Receipt Date: 20060811
  Transmission Date: 20070707
  Serious: No
  Sender: FDA-Public Use
  Company Number: TPA2006A011332

PATIENT
  Age: 59 Year
  Sex: Female
  Weight: 68.0396 kg

DRUGS (4)
  1. ROZEREM [Suspect]
     Indication: INSOMNIA
     Dosage: 8 MG, QHS, PER ORAL
     Route: 048
     Dates: start: 20060726, end: 20060727
  2. BIEST (ALL OTHER THERAPEUTIC PRODUCTS) [Concomitant]
  3. PROGESTERONE [Concomitant]
  4. ALPRAZOLAM [Concomitant]

REACTIONS (7)
  - FEELING JITTERY [None]
  - MALAISE [None]
  - POOR QUALITY SLEEP [None]
  - SENSORY DISTURBANCE [None]
  - THERAPEUTIC RESPONSE PROLONGED [None]
  - THINKING ABNORMAL [None]
  - TREMOR [None]
